FAERS Safety Report 4942687-0 (Version None)
Quarter: 2006Q1

REPORT INFORMATION
  Report Type: 
  Country: None (occurrence: None)
  Receive Date: 20060309
  Receipt Date: 20060303
  Transmission Date: 20060701
  Serious: Yes (Death, Life-Threatening, Hospitalization)
  Sender: FDA-Public Use
  Company Number: 2006EN000074

PATIENT
  Age: 63 Year
  Sex: Female

DRUGS (4)
  1. ABELCET [Suspect]
     Indication: FUNGAL INFECTION
  2. CASPOFUNGIN (CASPOFUNGIN) [Suspect]
     Indication: FUNGAL INFECTION
     Dosage: 50 MG;
  3. POSACONAZOLE [Suspect]
     Indication: FUNGAL INFECTION
  4. POSACONAZOLE [Concomitant]

REACTIONS (2)
  - DRUG INEFFECTIVE [None]
  - FUNGAL INFECTION [None]
